FAERS Safety Report 8978057 (Version 2)
Quarter: 2013Q1

REPORT INFORMATION
  Report Type: Spontaneous
  Country: US (occurrence: US)
  Receive Date: 20121221
  Receipt Date: 20130110
  Transmission Date: 20140127
  Serious: Yes (Death, Hospitalization)
  Sender: FDA-Public Use
  Company Number: US-009507513-1212USA008096

PATIENT
  Age: 82 Year
  Sex: Male

DRUGS (1)
  1. TEMODAR [Suspect]
     Route: 048

REACTIONS (1)
  - Death [Fatal]
